FAERS Safety Report 7064906-X (Version None)
Quarter: 2010Q4

REPORT INFORMATION
  Report Type: 
  Country: None (occurrence: None)
  Receive Date: 20101027
  Receipt Date: 19900802
  Transmission Date: 20110411
  Serious: Yes (Death, Hospitalization)
  Sender: FDA-Public Use
  Company Number: US-ROCHE-900200885001

PATIENT
  Age: 56 Year
  Sex: Female

DRUGS (5)
  1. INTERFERON ALFA-2A [Suspect]
     Indication: RENAL CELL CARCINOMA
     Route: 058
     Dates: start: 19900502, end: 19900521
  2. INTERFERON ALFA-2A [Suspect]
     Route: 058
     Dates: start: 19900522, end: 19900618
  3. VICODIN [Concomitant]
     Route: 048
  4. ACETAMINOPHEN [Concomitant]
     Route: 048
  5. IRON [Concomitant]
     Route: 065

REACTIONS (3)
  - MALIGNANT NEOPLASM PROGRESSION [None]
  - NEUROPATHY PERIPHERAL [None]
  - RENAL CELL CARCINOMA [None]
